FAERS Safety Report 9118823 (Version 1)
Quarter: 2013Q1

REPORT INFORMATION
  Report Type: Spontaneous
  Country: IT (occurrence: IT)
  Receive Date: 20130226
  Receipt Date: 20130226
  Transmission Date: 20140127
  Serious: Yes (Other)
  Sender: FDA-Public Use
  Company Number: PHHY2013IT017998

PATIENT
  Age: 60 Year
  Sex: Female

DRUGS (4)
  1. ZOLEDRONATE [Suspect]
     Indication: BREAST CANCER
     Dosage: 4 MG, ONCE IN A MONTH
     Route: 042
     Dates: start: 201003
  2. AMOXICILLIN/CLAVULANIC ACID [Concomitant]
     Dosage: 1 G, EVERY 8 HR FOR 6 DAYS
  3. ERYTHROMYCIN [Concomitant]
     Dosage: 600 MG, EVERY 8 HR FOR 6 DAYS
  4. MEPIVACAINE W/EPINEPHRINE [Concomitant]
     Dosage: UNK UKN, UNK

REACTIONS (1)
  - Osteonecrosis of jaw [Unknown]
